FAERS Safety Report 8733486 (Version 2)
Quarter: 2013Q1

REPORT INFORMATION
  Report Type: Spontaneous
  Country: CA (occurrence: CA)
  Receive Date: 20120821
  Receipt Date: 20130213
  Transmission Date: 20140127
  Serious: Yes (Other)
  Sender: FDA-Public Use
  Company Number: CA-NOVOPROD-357901

PATIENT
  Age: 52 Year
  Sex: Female
  Weight: 115 kg

DRUGS (6)
  1. VICTOZA [Suspect]
     Indication: TYPE 2 DIABETES MELLITUS
     Dosage: 1.8 MG, QD
     Route: 058
     Dates: start: 201111
  2. VICTOZA [Suspect]
     Indication: OBESITY
  3. NOVOLIN GE 30/70 PENFILL [Concomitant]
     Indication: TYPE 2 DIABETES MELLITUS
     Dosage: 70 U, DOSE FREQUENCY QHS
     Route: 058
  4. GLUCONORM [Concomitant]
     Indication: TYPE 2 DIABETES MELLITUS
     Dosage: 3 MG, BID
     Route: 048
  5. METFORMIN [Concomitant]
     Indication: TYPE 2 DIABETES MELLITUS
     Dosage: 100 MG, BID
     Route: 048
  6. VALSARTAN [Concomitant]
     Dosage: 80 MG, QD
     Route: 048

REACTIONS (1)
  - Arthralgia [Not Recovered/Not Resolved]
